FAERS Safety Report 5847867-8 (Version None)
Quarter: 2008Q3

REPORT INFORMATION
  Report Type: 
  Country: None (occurrence: None)
  Receive Date: 20080814
  Receipt Date: 20080814
  Transmission Date: 20090109
  Serious: No
  Sender: FDA-Public Use
  Company Number: None

PATIENT
  Age: 35 Year
  Sex: Female
  Weight: 81.2 kg

DRUGS (2)
  1. ZYPREXA ZYDIS [Suspect]
     Indication: DELIRIUM
     Dosage: 10 MG QHS PO
     Route: 048
     Dates: start: 20080727, end: 20080731
  2. ZYPREXA ZYDIS [Suspect]
     Indication: SCHIZOPHRENIA
     Dosage: 10 MG QHS PO
     Route: 048
     Dates: start: 20080727, end: 20080731

REACTIONS (3)
  - ABDOMINAL PAIN UPPER [None]
  - ALANINE AMINOTRANSFERASE INCREASED [None]
  - ASPARTATE AMINOTRANSFERASE INCREASED [None]
